FAERS Safety Report 23468672 (Version 2)
Quarter: 2024Q1

REPORT INFORMATION
  Report Type: Report from Study
  Country: GB (occurrence: GB)
  Receive Date: 20240202
  Receipt Date: 20240221
  Transmission Date: 20240409
  Serious: Yes (Death, Hospitalization)
  Sender: FDA-Public Use
  Company Number: GB-JNJFOC-20240165622

PATIENT
  Age: 62 Year
  Sex: Female

DRUGS (8)
  1. TECLISTAMAB [Suspect]
     Active Substance: TECLISTAMAB
     Indication: Plasma cell myeloma refractory
     Route: 065
     Dates: start: 20230531
  2. TECLISTAMAB [Suspect]
     Active Substance: TECLISTAMAB
     Route: 065
  3. TECLISTAMAB [Suspect]
     Active Substance: TECLISTAMAB
     Route: 065
     Dates: end: 20240102
  4. DOXYCYCLINE [Concomitant]
     Active Substance: DOXYCYCLINE
     Indication: Prophylaxis
     Route: 048
     Dates: start: 20230531
  5. LANSOPRAZOLE [Concomitant]
     Active Substance: LANSOPRAZOLE
     Indication: Prophylaxis
     Route: 048
     Dates: start: 20230531
  6. FLUCONAZOLE [Concomitant]
     Active Substance: FLUCONAZOLE
     Indication: Prophylaxis
     Route: 048
     Dates: start: 20230531
  7. ACYCLOVIR [Concomitant]
     Active Substance: ACYCLOVIR
     Indication: Prophylaxis
     Route: 048
     Dates: start: 20230531
  8. PENTAMIDINE [Concomitant]
     Active Substance: PENTAMIDINE
     Indication: Prophylaxis
     Route: 045
     Dates: start: 20231205

REACTIONS (2)
  - Bacterial sepsis [Fatal]
  - Plasma cell myeloma [Fatal]

NARRATIVE: CASE EVENT DATE: 20240106
